FAERS Safety Report 7904349-7 (Version None)
Quarter: 2011Q4

REPORT INFORMATION
  Report Type: 
  Country: None (occurrence: None)
  Receive Date: 20111109
  Receipt Date: 20111104
  Transmission Date: 20120403
  Serious: Yes (Death)
  Sender: FDA-Public Use
  Company Number: CA-PFIZER INC-2011261247

PATIENT
  Sex: Male

DRUGS (10)
  1. SPIRONOLACTONE [Concomitant]
     Dosage: 25 MG, 1X/DAY
  2. REVATIO [Suspect]
     Indication: PULMONARY ARTERIAL HYPERTENSION
     Dosage: 20 MG, 3X/DAY
     Dates: start: 20070201
  3. THELIN [Concomitant]
     Indication: PULMONARY HYPERTENSION
     Dosage: 100 MG, 1X/DAY
  4. CODEINE [Concomitant]
     Dosage: 30 MG
  5. INSULIN [Concomitant]
     Dosage: UNK
  6. NASONEX [Concomitant]
     Dosage: UNK
  7. METFORMIN [Concomitant]
     Dosage: UNK
  8. POTASSIUM [Concomitant]
     Dosage: 20 EQ DAILY
  9. LASIX [Concomitant]
     Dosage: 80 MG
  10. LASIX [Concomitant]
     Dosage: 40 MG IN THE AFTERNOON

REACTIONS (1)
  - DEATH [None]
